FAERS Safety Report 13306225 (Version 1)
Quarter: 2017Q1

REPORT INFORMATION
  Report Type: Spontaneous
  Country: GB (occurrence: GB)
  Receive Date: 20170308
  Receipt Date: 20170308
  Transmission Date: 20170428
  Serious: Yes (Hospitalization, Other)
  Sender: FDA-Public Use
  Company Number: GB-MYLANLABS-2017M1014073

PATIENT

DRUGS (1)
  1. ADENOSINE. [Suspect]
     Active Substance: ADENOSINE
     Indication: SUPRAVENTRICULAR TACHYCARDIA
     Dosage: SINGLE DOSE OF 6 MG
     Route: 040

REACTIONS (2)
  - Ventricular fibrillation [Recovered/Resolved]
  - Circulatory collapse [Recovered/Resolved]
